FAERS Safety Report 5676514-3 (Version None)
Quarter: 2008Q2

REPORT INFORMATION
  Report Type: 
  Country: None (occurrence: None)
  Receive Date: 20080311
  Receipt Date: 20071211
  Transmission Date: 20081010
  Serious: No
  Sender: FDA-Public Use
  Company Number: 002#2#2007-00381

PATIENT
  Age: 79 Year
  Sex: Male
  Weight: 88.4514 kg

DRUGS (5)
  1. NEUPRO [Suspect]
     Indication: PARKINSON'S DISEASE
     Dosage: 2MG/24H,1 IN 1 D,TRANSDERMAL; 4MG/24H,1 IN 1 D,TRANSDERMAL
     Route: 062
     Dates: start: 20071128, end: 20071201
  2. NEUPRO [Suspect]
     Indication: PARKINSON'S DISEASE
     Dosage: 2MG/24H,1 IN 1 D,TRANSDERMAL; 4MG/24H,1 IN 1 D,TRANSDERMAL
     Route: 062
     Dates: start: 20071201, end: 20071211
  3. COUMADIN [Concomitant]
  4. PROPAFENONE HCL [Concomitant]
  5. ASPIRIN [Concomitant]

REACTIONS (2)
  - DECREASED APPETITE [None]
  - GAIT DISTURBANCE [None]
